FAERS Safety Report 20407989 (Version 1)
Quarter: 2022Q1

REPORT INFORMATION
  Report Type: Spontaneous
  Country: BE (occurrence: BE)
  Receive Date: 20220201
  Receipt Date: 20220201
  Transmission Date: 20220423
  Serious: Yes (Hospitalization, Other)
  Sender: FDA-Public Use
  Company Number: BE-IPCA LABORATORIES LIMITED-IPC-2022-BE-000041

PATIENT

DRUGS (3)
  1. METFORMIN [Suspect]
     Active Substance: METFORMIN HYDROCHLORIDE
     Indication: Product used for unknown indication
     Dosage: 850 MILLIGRAM, TID
     Route: 065
  2. PERINDOPRIL [Concomitant]
     Active Substance: PERINDOPRIL
     Indication: Hypertension
     Dosage: UNK
     Route: 065
  3. PARAMOXYCILLIN-CLAVULANIC ACID [Concomitant]
     Indication: Lung disorder
     Dosage: UNK
     Route: 065

REACTIONS (10)
  - Hypothermia [Unknown]
  - Lactic acidosis [Unknown]
  - Shock [Unknown]
  - Altered state of consciousness [Unknown]
  - Vomiting [Unknown]
  - Confusional state [Unknown]
  - Acute kidney injury [Unknown]
  - Hyperkalaemia [Unknown]
  - Dehydration [Unknown]
  - Overdose [Unknown]
